FAERS Safety Report 4395229-5 (Version None)
Quarter: 2004Q3

REPORT INFORMATION
  Report Type: 
  Country: None (occurrence: None)
  Receive Date: 20040712
  Receipt Date: 20030625
  Transmission Date: 20050211
  Serious: Yes (Disabling)
  Sender: FDA-Public Use
  Company Number: FR-MERCK-0306FRA00092

PATIENT
  Age: 63 Year
  Sex: Male

DRUGS (11)
  1. ACETAMINOPHEN AND PROPOXYPHENE HYDROCHLORIDE [Concomitant]
     Indication: PAIN
     Route: 048
  2. ALLOPURINOL [Concomitant]
     Route: 048
  3. ASPIRIN LYSINE [Concomitant]
     Indication: ISCHAEMIC CARDIOMYOPATHY
     Route: 048
  4. CHOLESTYRAMINE RESIN [Concomitant]
     Indication: HYPERCHOLESTEROLAEMIA
     Route: 048
  5. DILTIAZEM HYDROCHLORIDE [Concomitant]
     Route: 048
  6. FLUINDIONE [Concomitant]
     Route: 048
  7. INSULIN [Concomitant]
     Indication: INSULIN-REQUIRING TYPE II DIABETES MELLITUS
     Route: 058
  8. MOLSIDOMINE [Concomitant]
     Indication: ISCHAEMIC CARDIOMYOPATHY
     Route: 048
  9. POTASSIUM (UNSPECIFIED) [Concomitant]
     Route: 048
  10. ZOCOR [Suspect]
     Indication: HYPERCHOLESTEROLAEMIA
     Route: 048
     Dates: start: 19900101, end: 20021101
  11. ZOCOR [Suspect]
     Route: 048
     Dates: start: 20021101, end: 20030601

REACTIONS (3)
  - MYOPATHY [None]
  - PARALYSIS [None]
  - PARAPLEGIA [None]
